FAERS Safety Report 20099356 (Version 2)
Quarter: 2021Q4

REPORT INFORMATION
  Report Type: Report from Study
  Country: LB (occurrence: LB)
  Receive Date: 20211122
  Receipt Date: 20211219
  Transmission Date: 20220303
  Serious: Yes (Death, Hospitalization)
  Sender: FDA-Public Use
  Company Number: LB-ABBVIE-21K-093-4169475-00

PATIENT
  Age: 78 Year
  Sex: Female
  Weight: 59 kg

DRUGS (6)
  1. VENCLEXTA [Suspect]
     Active Substance: VENETOCLAX
     Indication: Acute myeloid leukaemia
     Route: 048
     Dates: start: 20200721, end: 20200722
  2. VENCLEXTA [Suspect]
     Active Substance: VENETOCLAX
     Route: 048
     Dates: start: 20200723, end: 202008
  3. VENCLEXTA [Suspect]
     Active Substance: VENETOCLAX
     Dosage: 100MG/DAY FOR 5 DAYS EACH 21 DAYS
     Route: 048
     Dates: start: 20200910, end: 20201001
  4. VENCLEXTA [Suspect]
     Active Substance: VENETOCLAX
     Dosage: 100MG/DAY FOR 5 DAYS EACH 21 DAYS
     Route: 048
     Dates: start: 20201006, end: 20201027
  5. VENCLEXTA [Suspect]
     Active Substance: VENETOCLAX
     Dosage: 100MG/DAY FOR 5 DAYS EACH 21 DAYS
     Route: 048
     Dates: start: 202011, end: 202108
  6. VENCLEXTA [Suspect]
     Active Substance: VENETOCLAX
     Dosage: 200MG/DAY FOR 10 DAYS EVERY 21 DAYS
     Route: 048
     Dates: start: 20210911

REACTIONS (4)
  - General physical health deterioration [Fatal]
  - Pulmonary haemorrhage [Fatal]
  - Fall [Recovered/Resolved]
  - Contusion [Not Recovered/Not Resolved]

NARRATIVE: CASE EVENT DATE: 20211116
